FAERS Safety Report 13541589 (Version 1)
Quarter: 2017Q2

REPORT INFORMATION
  Report Type: Spontaneous
  Country: DE (occurrence: DE)
  Receive Date: 20170512
  Receipt Date: 20170512
  Transmission Date: 20170830
  Serious: Yes (Other)
  Sender: FDA-Public Use
  Company Number: DE-BAYER-2017-086941

PATIENT
  Sex: Male

DRUGS (4)
  1. ASPIRIN PROTECT 100 MG [Suspect]
     Active Substance: ASPIRIN
     Indication: CEREBROVASCULAR ACCIDENT
     Dosage: 100 MG, UNK
  2. IMIQUIMOD. [Concomitant]
     Active Substance: IMIQUIMOD
  3. ASPIRIN PROTECT 100 MG [Suspect]
     Active Substance: ASPIRIN
     Indication: CEREBROVASCULAR ACCIDENT
     Dosage: 0.5 DF, QD
  4. LISINOPRIL. [Concomitant]
     Active Substance: LISINOPRIL
     Indication: CEREBROVASCULAR ACCIDENT
     Dosage: UNK

REACTIONS (8)
  - Duodenal perforation [Recovered/Resolved]
  - Gastric perforation [Recovered/Resolved]
  - Prescribed underdose [None]
  - Duodenal ulcer [Recovered/Resolved]
  - Arrhythmia [None]
  - Bradycardia [None]
  - Malaise [None]
  - Gastric ulcer [Recovered/Resolved]
